FAERS Safety Report 8144899-4 (Version None)
Quarter: 2012Q1

REPORT INFORMATION
  Report Type: 
  Country: None (occurrence: None)
  Receive Date: 20120217
  Receipt Date: 20120210
  Transmission Date: 20120608
  Serious: Yes (Other)
  Sender: FDA-Public Use
  Company Number: DE-GLAXOSMITHKLINE-D0074448A

PATIENT
  Sex: Female
  Weight: 80 kg

DRUGS (4)
  1. DICLOFENAC [Suspect]
     Dosage: 50MG SEE DOSAGE TEXT
     Route: 048
     Dates: start: 20120210, end: 20120210
  2. LAMICTAL [Suspect]
     Dosage: 50MG SEE DOSAGE TEXT
     Route: 048
     Dates: start: 20120210, end: 20120210
  3. TRICYCLIC ANTIDEPRESSANT [Suspect]
     Route: 048
     Dates: start: 20120210, end: 20120210
  4. ALCOHOL [Suspect]
     Route: 048
     Dates: start: 20120210, end: 20120210

REACTIONS (5)
  - SUICIDE ATTEMPT [None]
  - SOMNOLENCE [None]
  - INTENTIONAL OVERDOSE [None]
  - TACHYCARDIA [None]
  - CONVULSION [None]
